FAERS Safety Report 4365033-2 (Version None)
Quarter: 2004Q2

REPORT INFORMATION
  Report Type: 
  Country: None (occurrence: None)
  Receive Date: 20040521
  Receipt Date: 20040505
  Transmission Date: 20050107
  Serious: Yes (Other)
  Sender: FDA-Public Use
  Company Number: B0332055A

PATIENT
  Age: 38 Year
  Sex: Male

DRUGS (3)
  1. EPIVIR [Suspect]
     Indication: HIV INFECTION
     Dates: start: 19990401
  2. STAVUDINE (STAVUDINE) [Suspect]
     Indication: HIV INFECTION
     Dates: start: 19990401
  3. INDINAVIR SULFATE (INDINAVIR SULFATE) [Suspect]
     Indication: HIV INFECTION
     Dates: start: 19990401

REACTIONS (2)
  - DISEASE RECURRENCE [None]
  - PNEUMOCYSTIS CARINII PNEUMONIA [None]
